FAERS Safety Report 7405059-5 (Version None)
Quarter: 2011Q2

REPORT INFORMATION
  Report Type: 
  Country: None (occurrence: None)
  Receive Date: 20110411
  Receipt Date: 20110401
  Transmission Date: 20111010
  Serious: Yes (Other)
  Sender: FDA-Public Use
  Company Number: GB-ASTELLAS-2011EU000627

PATIENT
  Sex: Female

DRUGS (6)
  1. TACROLIMUS [Suspect]
     Indication: DERMATITIS ATOPIC
     Dosage: UNK
     Route: 061
     Dates: start: 20040705
  2. BETNOVATE [Suspect]
     Indication: DERMATITIS ATOPIC
     Dosage: UNK
     Route: 061
     Dates: start: 20091006
  3. TZ-3 [Suspect]
     Indication: DERMATITIS ATOPIC
     Dosage: UNK
     Route: 061
     Dates: start: 20050314
  4. TZ-3 [Suspect]
     Dosage: UNK
     Route: 061
     Dates: start: 20091006
  5. EPADERM [Suspect]
     Indication: DERMATITIS ATOPIC
     Dosage: UNK
     Route: 061
     Dates: start: 20050314
  6. FLOXACILLIN SODIUM [Concomitant]
     Indication: INFECTION
     Dosage: UNK
     Route: 048

REACTIONS (2)
  - LYMPHADENOPATHY [None]
  - XANTHOGRANULOMA [None]
